FAERS Safety Report 15152722 (Version 1)
Quarter: 2018Q3

REPORT INFORMATION
  Report Type: Other
  Country: RU (occurrence: RU)
  Receive Date: 20180717
  Receipt Date: 20180717
  Transmission Date: 20181010
  Serious: No
  Sender: FDA-Public Use
  Company Number: RU-LUPIN PHARMACEUTICALS INC.-2018-03673

PATIENT
  Age: 58 Year
  Sex: Female
  Weight: 40 kg

DRUGS (7)
  1. ISONIAZID. [Suspect]
     Active Substance: ISONIAZID
     Indication: PULMONARY TUBERCULOSIS
     Dosage: 0.3 G, QD
     Route: 048
     Dates: start: 20121005, end: 20121109
  2. KANAMYCIN [Concomitant]
     Active Substance: KANAMYCIN\KANAMYCIN A SULFATE
     Indication: PULMONARY TUBERCULOSIS
     Dosage: UNK
     Route: 030
     Dates: start: 20121012
  3. GLUCOSE [Concomitant]
     Active Substance: DEXTROSE
     Indication: DETOXIFICATION
     Dosage: UNK
     Dates: start: 20121005, end: 20121011
  4. MACLEVO [Concomitant]
     Indication: PULMONARY TUBERCULOSIS
     Dosage: UNK
     Route: 030
     Dates: start: 20121012
  5. RIFABUTIN. [Suspect]
     Active Substance: RIFABUTIN
     Indication: PULMONARY TUBERCULOSIS
     Dosage: 0.3 G, QD
     Route: 048
     Dates: start: 20121012, end: 20121109
  6. VITAMIN B1 [Concomitant]
     Active Substance: THIAMINE HYDROCHLORIDE
     Indication: PROPHYLAXIS
     Dosage: UNK
     Route: 030
     Dates: start: 20121005, end: 20121105
  7. PYRAZINAMIDE. [Suspect]
     Active Substance: PYRAZINAMIDE
     Indication: PULMONARY TUBERCULOSIS
     Dosage: 1.5 G, QD
     Route: 048
     Dates: start: 20121012, end: 20121109

REACTIONS (1)
  - Alanine aminotransferase increased [Recovering/Resolving]

NARRATIVE: CASE EVENT DATE: 20121109
